FAERS Safety Report 4539306-4 (Version None)
Quarter: 2004Q4

REPORT INFORMATION
  Report Type: 
  Country: None (occurrence: None)
  Receive Date: 20041222
  Receipt Date: 20041215
  Transmission Date: 20050328
  Serious: Yes (Other)
  Sender: FDA-Public Use
  Company Number: 2004107978

PATIENT
  Age: 47 Year
  Sex: Female

DRUGS (2)
  1. LINEZOLID TABLET (LINEZOLID) [Suspect]
     Indication: NOCARDIOSIS
     Dosage: 1200 MG (600 MG, BID DAILY), ORAL
     Route: 048
     Dates: start: 20040821
  2. LINEZOLID SUSPENSION, ORAL (LINEZOLID) [Suspect]
     Indication: NOCARDIOSIS
     Dosage: 600 MG (DAILY), ORAL
     Route: 048

REACTIONS (2)
  - DEPRESSION [None]
  - NEUROPATHY [None]
